APPROVED DRUG PRODUCT: NIFEDIPINE
Active Ingredient: NIFEDIPINE
Strength: 20MG
Dosage Form/Route: CAPSULE;ORAL
Application: A202644 | Product #002 | TE Code: AB
Applicant: HERITAGE PHARMA LABS INC
Approved: Apr 25, 2013 | RLD: No | RS: No | Type: RX